FAERS Safety Report 7965943-0 (Version None)
Quarter: 2011Q4

REPORT INFORMATION
  Report Type: 
  Country: None (occurrence: None)
  Receive Date: 20111208
  Receipt Date: 20111205
  Transmission Date: 20120403
  Serious: No
  Sender: FDA-Public Use
  Company Number: US-PFIZER INC-2011297269

PATIENT
  Sex: Male

DRUGS (4)
  1. ZYPREXA [Suspect]
     Dosage: 5MG 1-2 TABLETS DAILY AT BEDTIME
     Route: 048
  2. HALDOL [Suspect]
     Dosage: UNK
  3. SEROQUEL [Suspect]
     Dosage: UNK
  4. ZOLOFT [Suspect]
     Dosage: 100 MG, UNK

REACTIONS (2)
  - WEIGHT INCREASED [None]
  - HYPERSOMNIA [None]
